FAERS Safety Report 4712434-6 (Version None)
Quarter: 2005Q3

REPORT INFORMATION
  Report Type: 
  Country: None (occurrence: None)
  Receive Date: 20050711
  Receipt Date: 20050702
  Transmission Date: 20060218
  Serious: Yes (Hospitalization)
  Sender: FDA-Public Use
  Company Number: 2005-07-0164

PATIENT
  Age: 56 Year
  Sex: Male

DRUGS (1)
  1. INTERFERON ALFA-2B LIKE INTRON A INJECTABLE [Suspect]
     Indication: MALIGNANT MELANOMA

REACTIONS (5)
  - CARDIAC FAILURE CONGESTIVE [None]
  - CARDIOGENIC SHOCK [None]
  - CARDIOMYOPATHY [None]
  - HYPOTHYROIDISM [None]
  - VENTRICULAR DYSFUNCTION [None]
